FAERS Safety Report 12540385 (Version 3)
Quarter: 2016Q3

REPORT INFORMATION
  Report Type: Spontaneous
  Country: US (occurrence: US)
  Receive Date: 20160708
  Receipt Date: 20160830
  Transmission Date: 20161109
  Serious: No
  Sender: FDA-Public Use
  Company Number: US-PFIZER INC-2016297719

PATIENT
  Age: 81 Year
  Sex: Male
  Weight: 76 kg

DRUGS (1)
  1. COLESTIPOL HCL [Suspect]
     Active Substance: COLESTIPOL HYDROCHLORIDE
     Indication: BLOOD CHOLESTEROL INCREASED
     Dosage: 1 G, 2X/DAY (1 GRAM, TAB, TWO TIMES A DAY)
     Route: 048

REACTIONS (3)
  - Poor quality drug administered [Unknown]
  - Expired product administered [Unknown]
  - Product physical issue [Unknown]
